FAERS Safety Report 10484731 (Version 1)
Quarter: 2014Q3

REPORT INFORMATION
  Report Type: Spontaneous
  Country: ES (occurrence: ES)
  Receive Date: 20140930
  Receipt Date: 20140930
  Transmission Date: 20150326
  Serious: Yes (Other)
  Sender: FDA-Public Use
  Company Number: ES-TEVA-511693ISR

PATIENT
  Age: 52 Year
  Sex: Female

DRUGS (4)
  1. FLUOROURACILO ACCORD 50 MG/ML SOLUCION INYECTABLE O PARA PERFUSION EFG [Suspect]
     Active Substance: FLUOROURACIL
     Indication: COLON CANCER
     Route: 065
     Dates: start: 20131202
  2. FOLINATO CALCICO TEVA 10 MG/ML SOLUCION INYECTABLE EFG [Suspect]
     Active Substance: LEUCOVORIN CALCIUM
     Indication: COLON CANCER
     Route: 065
     Dates: start: 20140310
  3. IRINOTECAN HOSPIRA 20 MG/ML CONCENTRADO PARA SOLUCION PARA PERFUSION E [Suspect]
     Active Substance: IRINOTECAN
     Indication: COLON CANCER
     Route: 065
     Dates: start: 20140310
  4. AVASTIN [Suspect]
     Active Substance: BEVACIZUMAB
     Indication: COLON CANCER
     Route: 065
     Dates: start: 20140107

REACTIONS (6)
  - Fall [Recovered/Resolved]
  - Loss of consciousness [None]
  - Fatigue [None]
  - Musculoskeletal stiffness [Recovered/Resolved]
  - Depressed level of consciousness [Recovered/Resolved]
  - Muscular weakness [Recovered/Resolved]

NARRATIVE: CASE EVENT DATE: 20140825
